FAERS Safety Report 10076745 (Version 1)
Quarter: 2014Q2

REPORT INFORMATION
  Report Type: Spontaneous
  Country: GB (occurrence: GB)
  Receive Date: 20140414
  Receipt Date: 20140414
  Transmission Date: 20141212
  Serious: Yes (Other)
  Sender: FDA-Public Use
  Company Number: GB-B.I. PHARMACEUTICALS,INC./RIDGEFIELD-2014-BI-16400YA

PATIENT
  Age: 78 Year
  Sex: Male

DRUGS (4)
  1. TAMSULOSINA [Suspect]
     Indication: URINARY RETENTION
     Dosage: 400 MCG
     Route: 048
     Dates: start: 20140303
  2. CLEXANE (ENOXAPARIN SODIUM) [Concomitant]
     Route: 065
  3. DOCUSATE [Concomitant]
     Route: 048
  4. LAXIDO (ELECTROLYTES NOS, MACROGOL 3350) [Concomitant]
     Dosage: DAILY DOSE:ONE DOSAGE FORM
     Route: 048

REACTIONS (2)
  - Lymphoedema [Unknown]
  - Pruritus [Unknown]
